FAERS Safety Report 18511492 (Version 1)
Quarter: 2020Q4

REPORT INFORMATION
  Report Type: Spontaneous
  Country: DE (occurrence: DE)
  Receive Date: 20201117
  Receipt Date: 20201117
  Transmission Date: 20210114
  Serious: Yes (Other)
  Sender: FDA-Public Use
  Company Number: DE-PFIZER INC-2020448577

PATIENT
  Sex: Female

DRUGS (2)
  1. IBRANCE [Suspect]
     Active Substance: PALBOCICLIB
     Dosage: 75 MG 2 WEEKS ON 2 WEEKS OFF
  2. IBRANCE [Suspect]
     Active Substance: PALBOCICLIB
     Dosage: 125 MG

REACTIONS (11)
  - Dry mouth [Unknown]
  - Eye pruritus [Unknown]
  - Haemorrhage [Unknown]
  - Dry skin [Unknown]
  - Arthralgia [Unknown]
  - Visual impairment [Unknown]
  - White blood cell count abnormal [Not Recovered/Not Resolved]
  - Suspected COVID-19 [Unknown]
  - Ageusia [Unknown]
  - Dizziness [Unknown]
  - Vomiting [Unknown]

NARRATIVE: CASE EVENT DATE: 202001
